FAERS Safety Report 8450962-0 (Version None)
Quarter: 2012Q2

REPORT INFORMATION
  Report Type: 
  Country: None (occurrence: None)
  Receive Date: 20120620
  Receipt Date: 20120615
  Transmission Date: 20120825
  Serious: Yes (Other)
  Sender: FDA-Public Use
  Company Number: US-ROCHE-1044056

PATIENT
  Sex: Male
  Weight: 93.07 kg

DRUGS (9)
  1. XANAX [Concomitant]
     Dosage: 07/MAR/2011
     Route: 048
  2. VITAMIN B6 [Concomitant]
     Dosage: 07/MAR/2011
     Route: 048
  3. ZELBORAF [Suspect]
     Indication: MALIGNANT MELANOMA
     Route: 048
     Dates: start: 20110211
  4. TOPROL-XL [Concomitant]
     Route: 048
     Dates: start: 20111205
  5. VITAMIN B-12 [Concomitant]
     Dosage: 07/MAR/2011
     Route: 048
  6. KYTRIL [Concomitant]
     Route: 048
     Dates: start: 20111205
  7. RESTORIL [Concomitant]
     Route: 048
     Dates: start: 20111205
  8. LOPRESSOR [Concomitant]
     Route: 048
     Dates: start: 20111011
  9. THALOMID [Concomitant]
     Dosage: 16/FEB/2011
     Route: 048

REACTIONS (5)
  - DYSGEUSIA [None]
  - WHITE BLOOD CELL COUNT DECREASED [None]
  - SQUAMOUS CELL CARCINOMA [None]
  - NAUSEA [None]
  - BASAL CELL CARCINOMA [None]
